FAERS Safety Report 13084350 (Version 1)
Quarter: 2017Q1

REPORT INFORMATION
  Report Type: Spontaneous
  Country: US (occurrence: US)
  Receive Date: 20170102
  Receipt Date: 20170102
  Transmission Date: 20170428
  Serious: Yes (Other)
  Sender: FDA-Public Use
  Company Number: None

PATIENT
  Age: 49 Year
  Sex: Female
  Weight: 54 kg

DRUGS (8)
  1. ZEGRID [Concomitant]
  2. XARELTO [Suspect]
     Active Substance: RIVAROXABAN
     Indication: DEEP VEIN THROMBOSIS
     Dosage: ?          QUANTITY:1 TABLET(S);?
     Route: 048
  3. ACETAMINOPHEN. [Concomitant]
     Active Substance: ACETAMINOPHEN
  4. ARNICA [Concomitant]
     Active Substance: ARNICA MONTANA FLOWER
  5. BIFERA [Concomitant]
  6. BIO-FIBER [Concomitant]
  7. FERROUS SULFATE. [Concomitant]
     Active Substance: FERROUS SULFATE
  8. BIOTIN [Concomitant]
     Active Substance: BIOTIN

REACTIONS (3)
  - Alopecia [None]
  - Menorrhagia [None]
  - Pruritus [None]

NARRATIVE: CASE EVENT DATE: 20161201
